FAERS Safety Report 5657139-2 (Version None)
Quarter: 2008Q1

REPORT INFORMATION
  Report Type: 
  Country: None (occurrence: None)
  Receive Date: 20080310
  Receipt Date: 20080229
  Transmission Date: 20080703
  Serious: Yes (Hospitalization)
  Sender: FDA-Public Use
  Company Number: FR-SANOFI-SYNTHELABO-A02200800771

PATIENT
  Sex: Female

DRUGS (9)
  1. LASILIX [Suspect]
     Dosage: 160 MG
     Route: 048
  2. COVERSYL [Suspect]
     Route: 048
  3. CARDENSIEL [Suspect]
     Route: 048
     Dates: end: 20071216
  4. EUPRESSYL [Suspect]
     Route: 048
     Dates: end: 20071216
  5. LOXEN [Suspect]
     Route: 048
     Dates: end: 20071216
  6. PREVISCAN [Suspect]
     Dosage: UNK
     Route: 048
     Dates: start: 20030301, end: 20071216
  7. STILNOX [Suspect]
     Indication: DRUG USE FOR UNKNOWN INDICATION
     Route: 048
     Dates: end: 20071216
  8. FORLAX [Concomitant]
     Route: 048
  9. MOPRAL [Concomitant]
     Route: 048
     Dates: end: 20071216

REACTIONS (2)
  - CEREBRAL HAEMATOMA [None]
  - FALL [None]
